FAERS Safety Report 6168480-1 (Version None)
Quarter: 2009Q2

REPORT INFORMATION
  Report Type: 
  Country: None (occurrence: None)
  Receive Date: 20090427
  Receipt Date: 20090421
  Transmission Date: 20091009
  Serious: Yes (Other)
  Sender: FDA-Public Use
  Company Number: A0779685A

PATIENT
  Age: 52 Year
  Sex: Female

DRUGS (4)
  1. CEFTIN [Suspect]
     Dosage: 500MG SINGLE DOSE
     Route: 048
     Dates: start: 20090416, end: 20090416
  2. MULTI-VITAMIN [Concomitant]
  3. LOVAZA [Concomitant]
  4. CLARITIN [Concomitant]

REACTIONS (2)
  - ANAPHYLACTIC SHOCK [None]
  - EXPIRED DRUG ADMINISTERED [None]
